FAERS Safety Report 5534113-8 (Version None)
Quarter: 2007Q4

REPORT INFORMATION
  Report Type: 
  Country: None (occurrence: None)
  Receive Date: 20071130
  Receipt Date: 20071126
  Transmission Date: 20080405
  Serious: Yes (Death)
  Sender: FDA-Public Use
  Company Number: TCI2007A05831

PATIENT
  Age: 75 Year
  Sex: Male

DRUGS (5)
  1. LEUPROLIDE ACETATE [Suspect]
     Indication: PROSTATE CANCER STAGE IV
     Dosage: 11.25 MG (11.25 MG, 1 IN 12 WK) SUBCUTANEOUS
     Route: 058
     Dates: start: 20060811, end: 20070130
  2. BLOFRESS (CANDESARTAN CILEXETIL) (TABLETS) [Concomitant]
  3. CASODEX [Concomitant]
  4. FLIVAS (NAFTOPIDIL) (TABLETS) [Concomitant]
  5. BUFFERIN [Concomitant]

REACTIONS (9)
  - BENIGN PROSTATIC HYPERPLASIA [None]
  - CHEST X-RAY ABNORMAL [None]
  - CONDITION AGGRAVATED [None]
  - CREPITATIONS [None]
  - DYSPNOEA EXERTIONAL [None]
  - HYPOXIA [None]
  - INTERSTITIAL LUNG DISEASE [None]
  - PROSTATE CANCER [None]
  - URGE INCONTINENCE [None]
